FAERS Safety Report 9719298 (Version 3)
Quarter: 2014Q1

REPORT INFORMATION
  Report Type: Report from Study
  Country: AU (occurrence: AU)
  Receive Date: 20131127
  Receipt Date: 20140113
  Transmission Date: 20141002
  Serious: Yes (Other)
  Sender: FDA-Public Use
  Company Number: PHHY2013AU136448

PATIENT
  Age: 72 Year
  Sex: Female

DRUGS (4)
  1. CLOZARIL [Suspect]
     Indication: SCHIZOPHRENIA
     Dosage: 50 MG, EACH NIGHT
     Dates: start: 20100310
  2. ESCITALOPRAM [Concomitant]
     Indication: DEPRESSION
     Dosage: 10 MG, MANE
     Route: 048
     Dates: start: 20121113
  3. DIAREX [Concomitant]
     Dosage: 1000 MG, TID
     Route: 048
     Dates: start: 20050927
  4. DIAMICRON [Concomitant]
     Dosage: 30 MG, MANE
     Route: 048
     Dates: start: 20031103

REACTIONS (6)
  - Troponin increased [Not Recovered/Not Resolved]
  - Type 2 diabetes mellitus [Not Recovered/Not Resolved]
  - Fatigue [Unknown]
  - Dry skin [Unknown]
  - Polyuria [Unknown]
  - Polydipsia [Unknown]
